FAERS Safety Report 7168494-9 (Version None)
Quarter: 2010Q4

REPORT INFORMATION
  Report Type: 
  Country: None (occurrence: None)
  Receive Date: 20101216
  Receipt Date: 20100111
  Transmission Date: 20110411
  Serious: No
  Sender: FDA-Public Use
  Company Number: US-AMGEN-TCS385229

PATIENT

DRUGS (16)
  1. ENBREL [Suspect]
     Indication: PSORIATIC ARTHROPATHY
     Dosage: 50 MG, QWK
     Route: 058
     Dates: start: 20080203
  2. ENBREL [Suspect]
     Indication: PSORIASIS
  3. EFFEXOR XR [Concomitant]
     Dosage: 150 MG, QD
  4. NIASPAN [Concomitant]
     Dosage: 1000 MG, QD
  5. SIMVASTATIN [Concomitant]
     Dosage: 20 MG, QD
  6. LISINOPRIL AND HYDROCHLOROTHIAZIDE [Concomitant]
     Dosage: 25 MG, QD
  7. CLONAZEPAM [Concomitant]
     Dosage: .25 MG, BID
  8. CETIRIZINE HYDROCHLORIDE [Concomitant]
     Dosage: 10 MG, QD
  9. EPINEPHRINE [Concomitant]
     Dosage: UNK UNK, PRN
  10. ACETAMINOPHEN AND HYDROCODONE BITARTRATE [Concomitant]
     Dosage: UNK UNK, PRN
  11. TIZANIDINE [Concomitant]
     Dosage: 2 MG, PRN
  12. CLOBETASOL [Concomitant]
     Dosage: UNK UNK, PRN
  13. FISH OIL [Concomitant]
     Dosage: UNK UNK, QID
  14. MULTI-VITAMINS [Concomitant]
     Dosage: UNK UNK, QD
  15. ASPIRIN [Concomitant]
     Dosage: 81 MG, QD
  16. FIBRE, DIETARY [Concomitant]
     Dosage: 4 G, BID

REACTIONS (3)
  - INJECTION SITE HAEMATOMA [None]
  - LIMB INJURY [None]
  - PSORIASIS [None]
